FAERS Safety Report 10566511 (Version 2)
Quarter: 2014Q4

REPORT INFORMATION
  Report Type: Spontaneous
  Country: FR (occurrence: FR)
  Receive Date: 20141105
  Receipt Date: 20141112
  Transmission Date: 20150529
  Serious: Yes (Hospitalization, Congenital Anomaly, Other)
  Sender: FDA-Public Use
  Company Number: FR-PFIZER INC-2014303225

PATIENT
  Sex: Male
  Weight: 3.69 kg

DRUGS (2)
  1. TIMOFEROL [Suspect]
     Active Substance: ASCORBIC ACID\FERROUS SULFATE
     Dosage: 2 DF, DAILY
     Route: 064
     Dates: start: 201208
  2. DOSTINEX [Suspect]
     Active Substance: CABERGOLINE
     Dosage: 0.5 MG, WEEKLY
     Route: 064
     Dates: start: 20120312, end: 201203

REACTIONS (3)
  - Ventricular hypokinesia [Unknown]
  - Ventricular septal defect [Recovering/Resolving]
  - Maternal exposure during pregnancy [Recovering/Resolving]

NARRATIVE: CASE EVENT DATE: 20121202
